FAERS Safety Report 9269374 (Version 2)
Quarter: 2013Q2

REPORT INFORMATION
  Report Type: Spontaneous
  Country: US (occurrence: US)
  Receive Date: 20130503
  Receipt Date: 20130528
  Transmission Date: 20140414
  Serious: Yes (Hospitalization)
  Sender: FDA-Public Use
  Company Number: US-009507513-1304USA016376

PATIENT
  Sex: 0

DRUGS (1)
  1. ISENTRESS CHEWABLE TABLETS [Suspect]
     Dosage: UNK, STRENGTH: 100 MG 1 UNIT OF USE BOTTLE OF 60
     Route: 048

REACTIONS (2)
  - Gastrostomy [Unknown]
  - Wrong technique in drug usage process [Unknown]
